FAERS Safety Report 11915243 (Version 2)
Quarter: 2016Q1

REPORT INFORMATION
  Report Type: Report from Study
  Country: CO (occurrence: CO)
  Receive Date: 20160114
  Receipt Date: 20160126
  Transmission Date: 20160526
  Serious: Yes (Death, Life-Threatening, Hospitalization, Disabling, Other)
  Sender: FDA-Public Use
  Company Number: CO-AMGEN-COLSL2016002489

PATIENT
  Age: 43 Year
  Sex: Male

DRUGS (1)
  1. MIMPARA [Suspect]
     Active Substance: CINACALCET HYDROCHLORIDE
     Indication: HYPERPARATHYROIDISM SECONDARY
     Dosage: 60 MG, QD
     Route: 048
     Dates: start: 20141015, end: 20160117

REACTIONS (5)
  - Gastritis [Recovering/Resolving]
  - Death [Fatal]
  - Medical device change [Unknown]
  - Lower limb fracture [Recovering/Resolving]
  - Pain in extremity [Unknown]

NARRATIVE: CASE EVENT DATE: 20151230
